FAERS Safety Report 11001101 (Version 1)
Quarter: 2015Q2

REPORT INFORMATION
  Report Type: Spontaneous
  Country: US (occurrence: US)
  Receive Date: 20150408
  Receipt Date: 20150408
  Transmission Date: 20150821
  Serious: No
  Sender: FDA-Public Use
  Company Number: US-SA-2015SA012322

PATIENT
  Age: 64 Year
  Sex: Female
  Weight: 55 kg

DRUGS (2)
  1. ALLEGRA [Suspect]
     Active Substance: FEXOFENADINE HYDROCHLORIDE
     Indication: SINUSITIS
     Dosage: FREQUENCY: LAST NIGHT
     Route: 048
     Dates: start: 20150128, end: 20150129
  2. CEFDINIR. [Concomitant]
     Active Substance: CEFDINIR
     Indication: SINUSITIS
     Route: 065
     Dates: start: 20150121, end: 20150131

REACTIONS (2)
  - Product use issue [Unknown]
  - Insomnia [Recovered/Resolved]

NARRATIVE: CASE EVENT DATE: 20150128
